FAERS Safety Report 10400868 (Version 1)
Quarter: 2014Q3

REPORT INFORMATION
  Report Type: Spontaneous
  Country: US (occurrence: US)
  Receive Date: 20140821
  Receipt Date: 20140821
  Transmission Date: 20150326
  Serious: No
  Sender: FDA-Public Use
  Company Number: US-ASTRAZENECA-2014SE22698

PATIENT
  Age: 80 Year
  Sex: Female
  Weight: 72.6 kg

DRUGS (1)
  1. SYMBICORT [Suspect]
     Active Substance: BUDESONIDE\FORMOTEROL FUMARATE DIHYDRATE
     Indication: ASTHMA
     Dosage: 80/4.5 - 2 PUFFS TWO TIMES A DAY
     Route: 055
     Dates: start: 20140304, end: 20140328

REACTIONS (4)
  - Hunger [Recovering/Resolving]
  - Weight decreased [Not Recovered/Not Resolved]
  - Adverse event [Recovering/Resolving]
  - Pain in extremity [Recovering/Resolving]

NARRATIVE: CASE EVENT DATE: 201403
